FAERS Safety Report 11454477 (Version 1)
Quarter: 2015Q3

REPORT INFORMATION
  Report Type: Spontaneous
  Country: US (occurrence: US)
  Receive Date: 20150831
  Receipt Date: 20150831
  Transmission Date: 20151125
  Serious: No
  Sender: FDA-Public Use
  Company Number: US-ELI_LILLY_AND_COMPANY-US200902002017

PATIENT
  Sex: Female

DRUGS (2)
  1. MOBIC [Concomitant]
     Active Substance: MELOXICAM
     Dosage: 7.5 MG, DAILY (1/D)
  2. CYMBALTA [Suspect]
     Active Substance: DULOXETINE HYDROCHLORIDE
     Indication: POST-TRAUMATIC STRESS DISORDER
     Dosage: 60 MG, UNK
     Route: 048
     Dates: start: 2009, end: 201003

REACTIONS (3)
  - Suicidal ideation [Recovered/Resolved]
  - Increased appetite [Unknown]
  - Depression [Unknown]
